FAERS Safety Report 6392134-X (Version None)
Quarter: 2009Q4

REPORT INFORMATION
  Report Type: 
  Country: None (occurrence: None)
  Receive Date: 20091007
  Receipt Date: 20091001
  Transmission Date: 20100525
  Serious: Yes (Other)
  Sender: FDA-Public Use
  Company Number: US-BRISTOL-MYERS SQUIBB COMPANY-14805675

PATIENT

DRUGS (1)
  1. SUSTIVA [Suspect]

REACTIONS (1)
  - CHOLESTASIS [None]
